FAERS Safety Report 25613117 (Version 2)
Quarter: 2025Q3

REPORT INFORMATION
  Report Type: Spontaneous
  Country: EU (occurrence: EU)
  Receive Date: 20250728
  Receipt Date: 20250812
  Transmission Date: 20251021
  Serious: No
  Sender: PFIZER
  Company Number: EU-PFIZER INC-202500118339

PATIENT
  Age: 54 Year
  Sex: Female
  Weight: 106 kg

DRUGS (8)
  1. DALTEPARIN SODIUM [Suspect]
     Active Substance: DALTEPARIN SODIUM
     Indication: Thrombosis prophylaxis
     Route: 058
     Dates: start: 20250520, end: 20250610
  2. IBU [Concomitant]
     Active Substance: IBUPROFEN
     Indication: Surgery
     Dosage: UNK UNK, 2X/DAY
  3. METAMIZOLE SODIUM [Concomitant]
     Active Substance: METAMIZOLE SODIUM
     Indication: Surgery
  4. VERAPAMIL [Concomitant]
     Active Substance: VERAPAMIL HYDROCHLORIDE
     Indication: Cardiac disorder
     Dosage: 40 MG, 1X/DAY (IN THE MORNING)
  5. CANDESARTAN [Concomitant]
     Active Substance: CANDESARTAN
     Indication: Cardiac disorder
     Dosage: 40 MG, 1X/DAY (1-1/2-0)
  6. IVABRADINE [Concomitant]
     Active Substance: IVABRADINE
     Indication: Cardiac disorder
     Dosage: 5MG 1X/DAY
  7. AMOXICILLIN [Concomitant]
     Active Substance: AMOXICILLIN
     Indication: Surgery
     Dosage: 1000 UNK, 3X/DAY (1-1-1), 3 WEEKS
  8. DALTEPARIN [Concomitant]
     Active Substance: DALTEPARIN
     Indication: Surgery
     Dosage: 5000 UNK, 1X/DAY, FOR 3 WEEKS

REACTIONS (4)
  - Needle issue [Unknown]
  - Injection site pain [Unknown]
  - Skin disorder [Unknown]
  - Drug dose omission by device [Unknown]

NARRATIVE: CASE EVENT DATE: 20250101
